FAERS Safety Report 7399106-7 (Version None)
Quarter: 2011Q2

REPORT INFORMATION
  Report Type: 
  Country: None (occurrence: None)
  Receive Date: 20110407
  Receipt Date: 20110328
  Transmission Date: 20111010
  Serious: Yes (Hospitalization, Other)
  Sender: FDA-Public Use
  Company Number: BR-SANOFI-AVENTIS-2011SA019142

PATIENT
  Sex: Female

DRUGS (6)
  1. CLEXANE [Suspect]
     Route: 063
     Dates: start: 20110113
  2. CLEXANE [Suspect]
     Route: 063
     Dates: start: 20110113
  3. FOLIC ACID [Concomitant]
     Route: 063
     Dates: start: 20110113
  4. CLEXANE [Suspect]
     Indication: THROMBOSIS
     Route: 064
     Dates: start: 20100715, end: 20110113
  5. FOLIC ACID [Concomitant]
     Indication: PROPHYLAXIS
     Route: 064
     Dates: start: 20100711, end: 20110113
  6. CLEXANE [Suspect]
     Indication: PREGNANCY
     Route: 064
     Dates: start: 20100715, end: 20110113

REACTIONS (4)
  - DRUG EXPOSURE DURING PREGNANCY [None]
  - DRUG EXPOSURE VIA BREAST MILK [None]
  - NEONATAL TACHYCARDIA [None]
  - CEREBRAL THROMBOSIS [None]
